FAERS Safety Report 6574022-9 (Version None)
Quarter: 2010Q1

REPORT INFORMATION
  Report Type: 
  Country: None (occurrence: None)
  Receive Date: 20100208
  Receipt Date: 20100126
  Transmission Date: 20100710
  Serious: Yes (Hospitalization)
  Sender: FDA-Public Use
  Company Number: CH-ELI_LILLY_AND_COMPANY-CH201001002491

PATIENT
  Age: 59 Year
  Sex: Male

DRUGS (6)
  1. ZYPREXA [Suspect]
     Indication: DEPRESSION
     Dosage: 2.5 MG, DAILY (1/D)
     Route: 048
     Dates: start: 20090914, end: 20090919
  2. PAROXETINE HCL [Concomitant]
     Indication: DEPRESSION
     Dosage: 30 MG, DAILY (1/D)
     Route: 048
     Dates: end: 20090920
  3. ZOLDORM [Concomitant]
     Indication: SLEEP DISORDER
     Dosage: 10 MG, DAILY (1/D)
     Route: 048
     Dates: start: 20090907, end: 20090920
  4. CARSOL [Concomitant]
     Indication: MOOD SWINGS
     Dosage: 200 MG, DAILY (1/D)
     Route: 048
     Dates: start: 20090909, end: 20090911
  5. CARSOL [Concomitant]
     Dosage: 400 MG, DAILY (1/D)
     Route: 048
     Dates: start: 20090911, end: 20090915
  6. CARSOL [Concomitant]
     Dosage: 600 MG, DAILY (1/D)
     Route: 048
     Dates: start: 20090916, end: 20090920

REACTIONS (2)
  - OFF LABEL USE [None]
  - RASH MACULO-PAPULAR [None]
